FAERS Safety Report 4635647-0 (Version None)
Quarter: 2005Q2

REPORT INFORMATION
  Report Type: 
  Country: None (occurrence: None)
  Receive Date: 20050413
  Receipt Date: 20050331
  Transmission Date: 20051028
  Serious: Yes (Death, Hospitalization)
  Sender: FDA-Public Use
  Company Number: 430007M05FRA

PATIENT
  Age: 64 Year

DRUGS (2)
  1. NOVANTRONE [Suspect]
     Dosage: INTRAVENOUS
     Route: 042
  2. DOXORUBICIN HYDROCHLORIDE [Suspect]
     Indication: ACUTE LYMPHOCYTIC LEUKAEMIA
     Dosage: INTRAVENOUS
     Route: 042

REACTIONS (6)
  - HAEMORRHAGIC DIATHESIS [None]
  - KLEBSIELLA SEPSIS [None]
  - LEUKAEMIA [None]
  - MALIGNANT NEOPLASM PROGRESSION [None]
  - PANCYTOPENIA [None]
  - THERAPY NON-RESPONDER [None]
